FAERS Safety Report 5989212-3 (Version None)
Quarter: 2008Q4

REPORT INFORMATION
  Report Type: 
  Country: None (occurrence: None)
  Receive Date: 20081210
  Receipt Date: 20081201
  Transmission Date: 20090506
  Serious: Yes (Death, Hospitalization)
  Sender: FDA-Public Use
  Company Number: US-BIOGENIDEC-2008BI014363

PATIENT
  Age: 29 Year
  Sex: Female

DRUGS (1)
  1. TYSABRI [Suspect]
     Indication: MULTIPLE SCLEROSIS
     Route: 042
     Dates: start: 20071205, end: 20080430

REACTIONS (4)
  - MULTIPLE SCLEROSIS [None]
  - NEUROMYELITIS OPTICA [None]
  - PNEUMONIA [None]
  - URINARY TRACT INFECTION [None]
